FAERS Safety Report 15256387 (Version 1)
Quarter: 2018Q3

REPORT INFORMATION
  Report Type: Report from Study
  Country: None (occurrence: JP)
  Receive Date: 20180808
  Receipt Date: 20180808
  Transmission Date: 20181010
  Serious: Yes (Hospitalization, Other)
  Sender: FDA-Public Use
  Company Number: JP-ABBVIE-18P-087-2445717-00

PATIENT
  Age: 70 Year
  Sex: Male

DRUGS (1)
  1. LEUPLIN [Suspect]
     Active Substance: LEUPROLIDE ACETATE
     Indication: BULBOSPINAL MUSCULAR ATROPHY CONGENITAL
     Dosage: 11.25 MG, Q3MONTHS
     Route: 058

REACTIONS (2)
  - Brain contusion [Recovered/Resolved]
  - Fall [Recovered/Resolved]
